FAERS Safety Report 15478593 (Version 3)
Quarter: 2020Q3

REPORT INFORMATION
  Report Type: Spontaneous
  Country: US (occurrence: US)
  Receive Date: 20181009
  Receipt Date: 20200928
  Transmission Date: 20201102
  Serious: Yes (Other)
  Sender: FDA-Public Use
  Company Number: US-GILEAD-2018-0366634

PATIENT
  Age: 47 Year
  Sex: Male

DRUGS (1)
  1. TRUVADA [Suspect]
     Active Substance: EMTRICITABINE\TENOFOVIR DISOPROXIL FUMARATE
     Indication: HIV INFECTION
     Dosage: UNK
     Route: 048
     Dates: start: 20050914, end: 2011

REACTIONS (14)
  - Osteonecrosis [Unknown]
  - Osteopenia [Unknown]
  - Bone loss [Unknown]
  - Osteoarthritis [Not Recovered/Not Resolved]
  - Tooth extraction [Unknown]
  - Tooth fracture [Not Recovered/Not Resolved]
  - Vitamin D deficiency [Unknown]
  - Fanconi syndrome acquired [Not Recovered/Not Resolved]
  - Tooth loss [Unknown]
  - Arthralgia [Unknown]
  - Osteoporosis [Not Recovered/Not Resolved]
  - Renal failure [Not Recovered/Not Resolved]
  - Spinal osteoarthritis [Unknown]
  - Bone density decreased [Unknown]

NARRATIVE: CASE EVENT DATE: 20051121
